FAERS Safety Report 4727698-2 (Version None)
Quarter: 2005Q3

REPORT INFORMATION
  Report Type: 
  Country: None (occurrence: None)
  Receive Date: 20050727
  Receipt Date: 20050711
  Transmission Date: 20060218
  Serious: Yes (Death, Congenital Anomaly)
  Sender: FDA-Public Use
  Company Number: S05-FRA-00273-02

PATIENT
  Age: 1 Day
  Sex: Male
  Weight: 1.765 kg

DRUGS (4)
  1. CITALOPRAM HYDROBROMIDE [Suspect]
     Indication: DEPRESSION
     Dosage: 10 MG QD TRANSPLACENTAL
     Route: 064
  2. CHLORPROMAZINE HCL [Suspect]
     Dosage: 0.25 QD TRANSPLACENTAL
     Route: 064
  3. RIVOTRIL (CLONAZEPAM) [Concomitant]
  4. OMEPRAZOLE [Concomitant]

REACTIONS (24)
  - AREFLEXIA [None]
  - CAESAREAN SECTION [None]
  - CAMPTODACTYLY CONGENITAL [None]
  - CEREBRAL HAEMORRHAGE [None]
  - CHOLESTASIS [None]
  - CLEFT PALATE [None]
  - CONGENITAL MULTIPLEX ARTHROGRYPOSIS [None]
  - DRUG EXPOSURE DURING PREGNANCY [None]
  - FOETAL DISORDER [None]
  - FOETAL DISTRESS SYNDROME [None]
  - GASTROINTESTINAL MOTILITY DISORDER [None]
  - HAND DEFORMITY [None]
  - HIP DYSPLASIA [None]
  - HYPOKINESIA NEONATAL [None]
  - HYPOXIA [None]
  - ISCHAEMIA [None]
  - JOINT HYPEREXTENSION [None]
  - MUSCULAR DYSTROPHY [None]
  - MUSCULAR WEAKNESS [None]
  - MYASTHENIC SYNDROME [None]
  - MYDRIASIS [None]
  - POLYHYDRAMNIOS [None]
  - PREMATURE BABY [None]
  - PULMONARY HYPERTENSION [None]
